FAERS Safety Report 25368429 (Version 1)
Quarter: 2025Q2

REPORT INFORMATION
  Report Type: Spontaneous
  Country: US (occurrence: US)
  Receive Date: 20250528
  Receipt Date: 20250528
  Transmission Date: 20250717
  Serious: No
  Sender: ELI LILLY AND COMPANY
  Company Number: US-ELI_LILLY_AND_COMPANY-US202505017535

PATIENT
  Age: 42 Year
  Sex: Male
  Weight: 80 kg

DRUGS (19)
  1. ZEPBOUND [Interacting]
     Active Substance: TIRZEPATIDE
     Indication: Product used for unknown indication
     Route: 065
  2. LUMRYZ [Interacting]
     Active Substance: SODIUM OXYBATE
     Indication: Narcolepsy
     Dosage: 4.5 G, DAILY (ONCE NIGHTLY)
     Route: 048
     Dates: start: 20241014, end: 20241020
  3. LUMRYZ [Interacting]
     Active Substance: SODIUM OXYBATE
     Dosage: 4.5 G, DAILY (ONCE NIGHTLY)
     Route: 048
     Dates: start: 20241021, end: 202411
  4. LUMRYZ [Interacting]
     Active Substance: SODIUM OXYBATE
     Dosage: 7.5 G, DAILY (ONCE NIGHTLY)
     Route: 048
     Dates: start: 202411, end: 202411
  5. LUMRYZ [Interacting]
     Active Substance: SODIUM OXYBATE
     Dosage: 7.5 G, DAILY (ONCE NIGHTLY)
     Route: 048
     Dates: start: 202411
  6. WAKIX [Concomitant]
     Active Substance: PITOLISANT HYDROCHLORIDE
     Indication: Product used for unknown indication
  7. ACETYLCYSTEINE [Concomitant]
     Active Substance: ACETYLCYSTEINE
     Indication: Product used for unknown indication
  8. VALTREX [Concomitant]
     Active Substance: VALACYCLOVIR HYDROCHLORIDE
     Indication: Product used for unknown indication
  9. L-METHYLFOLATE CALCIUM [CALCIUM LEVOMEFOLATE] [Concomitant]
     Indication: Product used for unknown indication
  10. CREATINE [Concomitant]
     Active Substance: CREATINE
     Indication: Product used for unknown indication
  11. WELLBUTRIN SR [Concomitant]
     Active Substance: BUPROPION HYDROCHLORIDE
     Indication: Product used for unknown indication
     Dates: end: 202412
  12. VITAMIN B12 [Concomitant]
     Active Substance: CYANOCOBALAMIN
     Indication: Product used for unknown indication
  13. MAGNESIUM [Concomitant]
     Active Substance: MAGNESIUM
     Indication: Product used for unknown indication
  14. NALTREXONE HYDROCHLORIDE [Concomitant]
     Active Substance: NALTREXONE HYDROCHLORIDE
     Indication: Product used for unknown indication
  15. VITAMIN D2 [Concomitant]
     Active Substance: ERGOCALCIFEROL
     Indication: Product used for unknown indication
  16. MODAFINIL [Concomitant]
     Active Substance: MODAFINIL
     Indication: Product used for unknown indication
  17. VITAMIN K [Concomitant]
     Active Substance: PHYTONADIONE
     Indication: Product used for unknown indication
  18. CLOMIDIN [CLOMIFENE CITRATE] [Concomitant]
     Indication: Product used for unknown indication
  19. ICOSAPENT [Concomitant]
     Active Substance: ICOSAPENT

REACTIONS (2)
  - Insomnia [Recovering/Resolving]
  - Drug interaction [Unknown]
